FAERS Safety Report 4591964-4 (Version None)
Quarter: 2005Q1

REPORT INFORMATION
  Report Type: 
  Country: None (occurrence: None)
  Receive Date: 20050222
  Receipt Date: 20050207
  Transmission Date: 20050727
  Serious: Yes (Other)
  Sender: FDA-Public Use
  Company Number: 2005026295

PATIENT
  Sex: Female
  Weight: 95.2554 kg

DRUGS (29)
  1. CELEBREX [Suspect]
     Indication: OSTEOARTHRITIS
     Dosage: 400 MG (200 MG, 2 IN 1 D), ORAL
     Route: 048
     Dates: start: 20020101
  2. ZYRTEC [Suspect]
     Indication: MULTIPLE ALLERGIES
     Dosage: (10 MG), ORAL
     Route: 048
     Dates: start: 20020101
  3. DETROL LA [Suspect]
     Indication: BLADDER DISORDER
     Dosage: ORAL
     Route: 048
  4. ZOLPIDEM TARTRATE [Suspect]
     Indication: INSOMNIA
     Dates: start: 20040101, end: 20040101
  5. VALSARTAN (VALSARTAN) [Suspect]
     Indication: HYPERTENSION
     Dates: end: 20040101
  6. METOCLOPRAMIDE [Concomitant]
  7. FELODIPINE [Concomitant]
  8. METOPROLOL TARTRATE [Concomitant]
  9. OXYCODONE HCL [Concomitant]
  10. DIAZEPAM [Concomitant]
  11. OXYCODONE HCL [Concomitant]
  12. VENLLAFAXINE HYDROCHLORIDE (VENLAFAXINE HYDROCHLORIDE) [Concomitant]
  13. CONJUGATED ESTROGENS [Concomitant]
  14. GUAIFENESIN W/DEXTROMETHORPHAN (DEXTROMETHORPHAN, GUAIFENESIN) [Concomitant]
  15. BRIMONIDINE TARTRATE (BRIMONIDINE TARTRATE) [Concomitant]
  16. BRINZOLAMIDE (BRINZOLAMIDE) [Concomitant]
  17. TRIAMCINOLONE ACETNOIDE (TRIAMCINOLONE ACETONIDE) [Concomitant]
  18. FLUTICASONE PROPIONATE [Concomitant]
  19. SALBUTAMOL (SALBUTAMOL) [Concomitant]
  20. LACTULOSE [Concomitant]
  21. CENTRUM (MINERALS NOS, VITAMINS NOS) [Concomitant]
  22. RETINOL (RETINOL) [Concomitant]
  23. ASPIRIN [Concomitant]
  24. CALCIUM (CALCIUM) [Concomitant]
  25. DOCUSATE (DOCUSATE) [Concomitant]
  26. TRAZADONE (TRAZADONE) [Concomitant]
  27. LIDOCAINE HYDROCHLORIDE [Concomitant]
  28. DILTIAZEM HYDROCHLORIDE [Concomitant]
  29. DYAZIDE [Concomitant]

REACTIONS (13)
  - ARTERIAL DISORDER [None]
  - BALANCE DISORDER [None]
  - BLOOD PRESSURE INADEQUATELY CONTROLLED [None]
  - CONDITION AGGRAVATED [None]
  - CONSTIPATION [None]
  - DIFFICULTY IN WALKING [None]
  - DRY MOUTH [None]
  - GANGRENE [None]
  - HYPOTONIC URINARY BLADDER [None]
  - INSOMNIA [None]
  - PAIN IN EXTREMITY [None]
  - POLYDIPSIA [None]
  - URINARY INCONTINENCE [None]
